FAERS Safety Report 7559572-0 (Version None)
Quarter: 2011Q2

REPORT INFORMATION
  Report Type: 
  Country: None (occurrence: None)
  Receive Date: 20110621
  Receipt Date: 20110613
  Transmission Date: 20111010
  Serious: Yes (Other)
  Sender: FDA-Public Use
  Company Number: CN-ASTRAZENECA-2011SE35842

PATIENT
  Age: 60 Year
  Sex: Male
  Weight: 58 kg

DRUGS (2)
  1. OMEPRAZOLE [Suspect]
     Indication: GASTRIC ULCER
     Route: 048
  2. OMEPRAZOLE [Suspect]
     Route: 048
     Dates: start: 20110501

REACTIONS (6)
  - AGITATION [None]
  - URTICARIA [None]
  - ILLUSION [None]
  - FEELING ABNORMAL [None]
  - AGGRESSION [None]
  - HEADACHE [None]
